FAERS Safety Report 13774782 (Version 1)
Quarter: 2017Q3

REPORT INFORMATION
  Report Type: Spontaneous
  Country: US (occurrence: US)
  Receive Date: 20170720
  Receipt Date: 20170720
  Transmission Date: 20171127
  Serious: No
  Sender: FDA-Public Use
  Company Number: None

PATIENT
  Sex: Male

DRUGS (1)
  1. TALTZ [Suspect]
     Active Substance: IXEKIZUMAB
     Indication: PSORIATIC ARTHROPATHY
     Dosage: 80MG Q2WKS WEEKS 2=12 SQ
     Route: 058
     Dates: start: 20170626, end: 20170717

REACTIONS (2)
  - Hepatic enzyme increased [None]
  - Therapy cessation [None]
